FAERS Safety Report 15090683 (Version 1)
Quarter: 2018Q2

REPORT INFORMATION
  Report Type: Spontaneous
  Country: IT (occurrence: IT)
  Receive Date: 20180629
  Receipt Date: 20180629
  Transmission Date: 20180711
  Serious: Yes (Hospitalization, Other)
  Sender: FDA-Public Use
  Company Number: IT-ASTELLAS-2018US029368

PATIENT
  Age: 16 Year
  Sex: Female

DRUGS (6)
  1. METILPREDNISOLONE [Concomitant]
     Active Substance: METHYLPREDNISOLONE
     Route: 042
  2. AMPICILLIN AND SULBACTAM [Concomitant]
     Active Substance: AMPICILLIN SODIUM\SULBACTAM SODIUM
     Indication: ANTIBIOTIC PROPHYLAXIS
     Route: 042
  3. CASPOFUNGIN [Concomitant]
     Active Substance: CASPOFUNGIN
     Indication: ANTIFUNGAL TREATMENT
     Dosage: UNK UNK, UNKNOWN FREQ.
     Route: 065
  4. METILPREDNISOLONE [Concomitant]
     Active Substance: METHYLPREDNISOLONE
     Indication: LIVER TRANSPLANT
     Route: 065
  5. FLUCONAZOLE. [Concomitant]
     Active Substance: FLUCONAZOLE
     Indication: ANTIFUNGAL TREATMENT
     Route: 042
  6. TACROLIMUS. [Suspect]
     Active Substance: TACROLIMUS
     Indication: LIVER TRANSPLANT
     Dosage: 0.04 MG/KG, TWICE DAILY
     Route: 048

REACTIONS (9)
  - Shock haemorrhagic [Unknown]
  - Septic shock [Unknown]
  - Candida infection [Unknown]
  - Post procedural bile leak [Unknown]
  - Acute hepatic failure [Unknown]
  - Infective aneurysm [Unknown]
  - Pseudomonas infection [Unknown]
  - Enterococcal infection [Unknown]
  - Haemorrhage [Unknown]
